FAERS Safety Report 10252962 (Version 1)
Quarter: 2014Q2

REPORT INFORMATION
  Report Type: Spontaneous
  Country: US (occurrence: US)
  Receive Date: 20140623
  Receipt Date: 20140623
  Transmission Date: 20141212
  Serious: No
  Sender: FDA-Public Use
  Company Number: US-PFIZER INC-2014171614

PATIENT
  Age: 49 Year
  Sex: Female
  Weight: 68.03 kg

DRUGS (2)
  1. CHANTIX [Suspect]
     Indication: SMOKING CESSATION THERAPY
     Dosage: UNK,2X/DAY
     Dates: start: 201312
  2. LEXAPRO [Concomitant]
     Dosage: UNK, DAILY

REACTIONS (1)
  - Feeling abnormal [Unknown]
